FAERS Safety Report 25456671 (Version 1)
Quarter: 2025Q2

REPORT INFORMATION
  Report Type: Spontaneous
  Country: JP (occurrence: JP)
  Receive Date: 20250619
  Receipt Date: 20250619
  Transmission Date: 20250716
  Serious: Yes (Other)
  Sender: INSUD PHARMA
  Company Number: JP-INSUD PHARMA-2506JP04695

PATIENT

DRUGS (4)
  1. LEVOTHYROXINE SODIUM [Suspect]
     Active Substance: LEVOTHYROXINE SODIUM
     Indication: Hypothyroidism
     Route: 065
  2. VITAMINS NOS [Concomitant]
     Active Substance: VITAMINS
     Route: 051
  3. AMINO ACIDS, SOURCE UNSPECIFIED [Concomitant]
     Active Substance: AMINO ACIDS, SOURCE UNSPECIFIED
     Dosage: 5.2 G/DAY
     Route: 051
  4. THIAMINE [Concomitant]
     Active Substance: THIAMINE
     Dosage: 2.9 MG/DAY
     Route: 051

REACTIONS (4)
  - Wernicke^s encephalopathy [Recovered/Resolved]
  - Altered state of consciousness [Recovered/Resolved]
  - Eye movement disorder [Recovered/Resolved]
  - Nystagmus [Recovered/Resolved]
